FAERS Safety Report 6843844-9 (Version None)
Quarter: 2010Q3

REPORT INFORMATION
  Report Type: 
  Country: None (occurrence: None)
  Receive Date: 20100715
  Receipt Date: 20100702
  Transmission Date: 20110219
  Serious: Yes (Other)
  Sender: FDA-Public Use
  Company Number: PHHY2010US30769

PATIENT
  Sex: Female
  Weight: 34.014 kg

DRUGS (5)
  1. RECLAST [Suspect]
     Indication: OSTEOPOROSIS
     Dosage: UNK
     Dates: start: 20090201
  2. VITAMINS [Suspect]
     Dosage: UNK
  3. IRON [Suspect]
     Dosage: UNK
  4. CALTRATE [Suspect]
  5. LIDOCAINE [Concomitant]

REACTIONS (2)
  - BLOOD PRESSURE INCREASED [None]
  - UPPER LIMB FRACTURE [None]
